FAERS Safety Report 23332289 (Version 2)
Quarter: 2023Q4

REPORT INFORMATION
  Report Type: Spontaneous
  Country: US (occurrence: US)
  Receive Date: 20231222
  Receipt Date: 20231229
  Transmission Date: 20240109
  Serious: No
  Sender: FDA-Public Use
  Company Number: US-SANDOZ-SDZ2023US070675

PATIENT
  Sex: Female
  Weight: 45.351 kg

DRUGS (1)
  1. RECLAST [Suspect]
     Active Substance: ZOLEDRONIC ACID
     Indication: Product used for unknown indication
     Dosage: 5 MG (ONCE YEARLY)
     Route: 065
     Dates: start: 20231215, end: 20231215

REACTIONS (2)
  - Influenza like illness [Unknown]
  - Acute phase reaction [Unknown]
